FAERS Safety Report 6733711-3 (Version None)
Quarter: 2010Q2

REPORT INFORMATION
  Report Type: 
  Country: None (occurrence: None)
  Receive Date: 20100520
  Receipt Date: 20100506
  Transmission Date: 20101027
  Serious: Yes (Hospitalization, Other)
  Sender: FDA-Public Use
  Company Number: PHHY2010CA24412

PATIENT
  Sex: Male

DRUGS (7)
  1. CO-DIOVAN T32564+ [Suspect]
     Dosage: UNK
  2. SEPTRA [Concomitant]
     Dosage: 1 TABLET PER DAY
     Route: 048
  3. DIOVAN [Concomitant]
     Dosage: 160 MG ONCE DAILY
  4. DIOVAN [Concomitant]
     Dosage: 320 MG ONCE DAILY
  5. NORVASC [Concomitant]
     Dosage: 2.5 MG, UNK
  6. METOPROLOL TARTRATE [Concomitant]
     Dosage: 12.5 MG, BID
  7. ASPIRIN [Concomitant]
     Dosage: 80 MG ONCE DAILY

REACTIONS (7)
  - CHOLELITHIASIS [None]
  - CHOLESTASIS [None]
  - HEPATIC ENZYME INCREASED [None]
  - LEFT VENTRICULAR DYSFUNCTION [None]
  - SEPSIS [None]
  - SEPTIC SHOCK [None]
  - TROPONIN INCREASED [None]
